APPROVED DRUG PRODUCT: RAUSERPIN
Active Ingredient: RAUWOLFIA SERPENTINA ROOT
Strength: 50MG
Dosage Form/Route: TABLET;ORAL
Application: N009926 | Product #002
Applicant: FERNDALE LABORATORIES INC
Approved: Approved Prior to Jan 1, 1982 | RLD: No | RS: No | Type: DISCN